FAERS Safety Report 19021557 (Version 1)
Quarter: 2021Q1

REPORT INFORMATION
  Report Type: Spontaneous
  Country: US (occurrence: US)
  Receive Date: 20210317
  Receipt Date: 20210317
  Transmission Date: 20210420
  Serious: No
  Sender: FDA-Public Use
  Company Number: US-ORGANON-O2102USA007837

PATIENT
  Age: 32 Year
  Sex: Female
  Weight: 81.63 kg

DRUGS (2)
  1. XANAX [Concomitant]
     Active Substance: ALPRAZOLAM
     Dosage: UNK
  2. NEXPLANON [Suspect]
     Active Substance: ETONOGESTREL
     Indication: CONTRACEPTION
     Dosage: 1 DOSAGE FORM (68 MILLIGRAM, ONCE)
     Route: 059
     Dates: start: 20210119

REACTIONS (3)
  - Supraventricular extrasystoles [Recovered/Resolved]
  - Ventricular extrasystoles [Recovered/Resolved]
  - Dizziness [Recovered/Resolved]

NARRATIVE: CASE EVENT DATE: 20210122
